FAERS Safety Report 8481310-8 (Version None)
Quarter: 2012Q3

REPORT INFORMATION
  Report Type: 
  Country: None (occurrence: None)
  Receive Date: 20120702
  Receipt Date: 20120625
  Transmission Date: 20120928
  Serious: Yes (Death)
  Sender: FDA-Public Use
  Company Number: ES-ELI_LILLY_AND_COMPANY-ES201202000961

PATIENT
  Sex: Female
  Weight: 100 kg

DRUGS (10)
  1. FUROSEMIDE [Concomitant]
     Indication: DIURETIC THERAPY
     Route: 048
  2. ANTIBIOTICS [Concomitant]
     Indication: OSTEOMYELITIS
     Route: 048
  3. ESCITALOPRAM [Concomitant]
     Indication: DEPRESSION
     Route: 048
  4. VENTOLIN [Concomitant]
     Indication: RESPIRATORY FAILURE
     Route: 055
  5. FORTEO [Suspect]
     Indication: OSTEOPOROSIS
     Dosage: 20 UG, QD
     Route: 058
     Dates: start: 20110726, end: 20120124
  6. CORTISONE ACETATE [Concomitant]
     Indication: PAIN
     Route: 048
  7. OMEPRAZOLE [Concomitant]
     Indication: GASTRIC DISORDER
     Route: 048
  8. OPIUM/NALOXONE TAB [Concomitant]
     Indication: PAIN
     Route: 048
  9. ABSTRAL [Concomitant]
     Indication: PAIN
     Route: 060
  10. ATROVENT [Concomitant]
     Indication: RESPIRATORY FAILURE
     Route: 055

REACTIONS (2)
  - RENAL FAILURE [None]
  - CARDIAC FAILURE [None]
